FAERS Safety Report 6071954-5 (Version None)
Quarter: 2009Q1

REPORT INFORMATION
  Report Type: 
  Country: None (occurrence: None)
  Receive Date: 20090205
  Receipt Date: 20090205
  Transmission Date: 20090719
  Serious: Yes (Hospitalization)
  Sender: FDA-Public Use
  Company Number: None

PATIENT
  Age: 85 Year
  Sex: Male
  Weight: 81.5 kg

DRUGS (12)
  1. WARFARIN SODIUM [Suspect]
     Indication: ATRIAL FIBRILLATION
     Dosage: 5MG DAILY PO CHRONIC
     Route: 048
  2. ASPIRIN [Suspect]
     Indication: ATRIAL FIBRILLATION
     Dosage: 81MG DAILY PO CHRONIC
     Route: 048
  3. TOPROL-XL [Concomitant]
  4. NIACIN [Concomitant]
  5. CALCIUM CENTRUM [Concomitant]
  6. FOLIC ACIS [Concomitant]
  7. COENZYME Q10 [Concomitant]
  8. SELENIUM [Concomitant]
  9. VITAMIN B-12 [Concomitant]
  10. VITAMIN D [Concomitant]
  11. PROBIOTIC [Concomitant]
  12. GLUCOSAMINE [Concomitant]

REACTIONS (3)
  - ASTHENIA [None]
  - GASTRITIS EROSIVE [None]
  - UPPER GASTROINTESTINAL HAEMORRHAGE [None]
